FAERS Safety Report 10189431 (Version 2)
Quarter: 2014Q4

REPORT INFORMATION
  Report Type: Report from Study
  Country: US (occurrence: US)
  Receive Date: 20140522
  Receipt Date: 20141028
  Transmission Date: 20150528
  Serious: Yes (Life-Threatening, Hospitalization)
  Sender: FDA-Public Use
  Company Number: US-009507513-1405USA011022

PATIENT
  Age: 65 Year
  Sex: Female
  Weight: 76.19 kg

DRUGS (9)
  1. LISINOPRIL. [Suspect]
     Active Substance: LISINOPRIL
     Dosage: DAILY DOSE: 5 MG
     Route: 048
     Dates: start: 20070901
  2. ASPIRIN. [Concomitant]
     Active Substance: ASPIRIN
     Dosage: DAILY DOSE: 81MG, QD
     Route: 048
     Dates: start: 20070901
  3. MORPHINE [Concomitant]
     Active Substance: MORPHINE
     Dosage: DAILY DOSE: 4MG/2ML Q2HR
     Route: 042
     Dates: start: 20140428, end: 20140429
  4. ZOSYN [Concomitant]
     Active Substance: PIPERACILLIN SODIUM\TAZOBACTAM SODIUM
     Dosage: DAILY DOSE: 2.25G 50 ML Q6H
     Route: 042
     Dates: start: 20140427, end: 20140509
  5. EZETIMIBE AND SIMVASTATIN [Suspect]
     Active Substance: EZETIMIBE\SIMVASTATIN
     Indication: ACUTE CORONARY SYNDROME
     Dosage: UNK
     Route: 048
     Dates: start: 20070913
  6. ONDANSETRON HYDROCHLORIDE. [Concomitant]
     Active Substance: ONDANSETRON HYDROCHLORIDE
     Dosage: DAILY DOSE: 4MG/2ML Q6H
     Route: 042
     Dates: start: 20140427
  7. HYDRALAZINE [Concomitant]
     Active Substance: HYDRALAZINE HYDROCHLORIDE
     Dosage: DAILY DOSE: 5MG/0.25ML Q2HR
     Route: 042
     Dates: start: 20140428
  8. ATENOLOL. [Concomitant]
     Active Substance: ATENOLOL
     Dosage: DAILY DOSE: 25MG, QD
     Route: 048
     Dates: start: 20070901
  9. NEXIUM [Concomitant]
     Active Substance: ESOMEPRAZOLE MAGNESIUM
     Dosage: DAILY DOSE: 40 MG INJECTION QD
     Dates: start: 20140427

REACTIONS (1)
  - Respiratory failure [Recovered/Resolved]

NARRATIVE: CASE EVENT DATE: 20140429
